FAERS Safety Report 8054165-3 (Version None)
Quarter: 2012Q1

REPORT INFORMATION
  Report Type: 
  Country: None (occurrence: None)
  Receive Date: 20120118
  Receipt Date: 20120105
  Transmission Date: 20120608
  Serious: Yes (Other)
  Sender: FDA-Public Use
  Company Number: BE-BRISTOL-MYERS SQUIBB COMPANY-16274128

PATIENT
  Age: 77 Year
  Sex: Female

DRUGS (5)
  1. BETAHISTINE [Concomitant]
  2. ORENCIA [Suspect]
     Indication: RHEUMATOID ARTHRITIS
     Dosage: LAST ADMIN: 15NOV11.
     Route: 040
     Dates: start: 20010215
  3. METHOTREXATE [Suspect]
     Indication: RHEUMATOID ARTHRITIS
     Dates: start: 20000101, end: 20111201
  4. STRUMAZOL [Concomitant]
  5. ACETAMINOPHEN [Concomitant]

REACTIONS (2)
  - ENCEPHALITIS [None]
  - LEUKOENCEPHALOPATHY [None]
